FAERS Safety Report 4424180-7 (Version None)
Quarter: 2004Q3

REPORT INFORMATION
  Report Type: 
  Country: None (occurrence: None)
  Receive Date: 20040810
  Receipt Date: 20040810
  Transmission Date: 20050211
  Serious: Yes (Death)
  Sender: FDA-Public Use
  Company Number: None

PATIENT
  Age: 60 Year
  Sex: Male
  Weight: 285 kg

DRUGS (4)
  1. CISPLATIN [Suspect]
     Indication: LUNG NEOPLASM MALIGNANT
     Dosage: 125 MGS IV X 1 DAY
     Route: 042
     Dates: start: 20040821
  2. ETOPOSIDE [Suspect]
     Dosage: 125 MG IV X 3 DAYS
     Route: 042
     Dates: start: 20040802, end: 20040804
  3. VALVE REGLACEMENT [Concomitant]
  4. COUMADIN [Concomitant]

REACTIONS (5)
  - BRAIN STEM SYNDROME [None]
  - COMA [None]
  - DYSPNOEA [None]
  - ELECTROENCEPHALOGRAM ABNORMAL [None]
  - HAEMOPTYSIS [None]
